FAERS Safety Report 6121580-4 (Version None)
Quarter: 2009Q1

REPORT INFORMATION
  Report Type: 
  Country: None (occurrence: None)
  Receive Date: 20090313
  Receipt Date: 20090302
  Transmission Date: 20090719
  Serious: Yes (Other)
  Sender: FDA-Public Use
  Company Number: PAR_02868_2009

PATIENT
  Sex: Female

DRUGS (2)
  1. ALPRAZOLAM [Suspect]
     Indication: ANXIETY
     Dosage: 1 MG PRN, DAILY ORAL
     Route: 048
     Dates: start: 20090201, end: 20090101
  2. ALPRAZOLAM [Suspect]
     Indication: DEPRESSION
     Dosage: 1 MG PRN, DAILY ORAL
     Route: 048
     Dates: start: 20090201, end: 20090101

REACTIONS (4)
  - AGITATION [None]
  - BLINDNESS TRANSIENT [None]
  - PRODUCT QUALITY ISSUE [None]
  - VISION BLURRED [None]
